FAERS Safety Report 9089036 (Version 1)
Quarter: 2013Q1

REPORT INFORMATION
  Report Type: Report from Study
  Country: US (occurrence: US)
  Receive Date: 20130130
  Receipt Date: 20130130
  Transmission Date: 20140127
  Serious: No
  Sender: FDA-Public Use
  Company Number: US-ABBOTT-12P-163-0948872-00

PATIENT
  Age: 49 Year
  Sex: Female

DRUGS (8)
  1. HUMIRA 40 MG/ 0.8 ML PRE-FILLED SYRINGE [Suspect]
     Indication: PSORIASIS
     Dates: start: 20120427
  2. LYRICA [Suspect]
     Indication: BACK PAIN
     Route: 048
  3. HYDROXYZINE [Concomitant]
     Indication: ANXIETY
     Dosage: 2 TABLETS AT BEDTIME
     Route: 048
  4. HYDROXYZINE [Concomitant]
     Indication: PRURITUS
  5. CITALOPRAM [Concomitant]
     Indication: NERVOUSNESS
     Dosage: DAILY
     Route: 048
  6. CLOBETASOL [Concomitant]
     Indication: PRODUCT USED FOR UNKNOWN INDICATION
     Dosage: APPLY TO AFFECTED AREAS AT BEDIME
  7. LUXIQ [Concomitant]
     Indication: PSORIASIS
     Dosage: APPLY FOAM TOPICALLY AT BEDTIME
  8. ALBUTEROL [Concomitant]
     Indication: ASTHMA
     Route: 055

REACTIONS (6)
  - Back pain [Not Recovered/Not Resolved]
  - Arthralgia [Not Recovered/Not Resolved]
  - Arthralgia [Not Recovered/Not Resolved]
  - Arthralgia [Not Recovered/Not Resolved]
  - Psoriasis [Not Recovered/Not Resolved]
  - Psoriasis [Not Recovered/Not Resolved]
